FAERS Safety Report 8239058-0 (Version None)
Quarter: 2012Q1

REPORT INFORMATION
  Report Type: 
  Country: None (occurrence: None)
  Receive Date: 20120327
  Receipt Date: 20120322
  Transmission Date: 20120608
  Serious: Yes (Hospitalization)
  Sender: FDA-Public Use
  Company Number: US-MERCK-1109USA01917

PATIENT
  Age: 67 Year
  Sex: Female
  Weight: 93 kg

DRUGS (5)
  1. FOSAMAX [Suspect]
     Indication: OSTEOPOROSIS
     Route: 048
     Dates: start: 19970101, end: 20090101
  2. FOSAMAX [Suspect]
     Route: 048
     Dates: start: 20090203
  3. FOSAMAX [Suspect]
     Route: 048
  4. FOSAMAX [Suspect]
     Indication: OSTEOPENIA
     Route: 048
     Dates: start: 19970101, end: 20090101
  5. FOSAMAX [Suspect]
     Route: 048

REACTIONS (23)
  - DILATATION ATRIAL [None]
  - HAEMORRHOIDS [None]
  - OSTEOARTHRITIS [None]
  - CELLULITIS [None]
  - INTERTRIGO [None]
  - TACHYCARDIA [None]
  - HYPERCHOLESTEROLAEMIA [None]
  - VITAMIN D DEFICIENCY [None]
  - JOINT CREPITATION [None]
  - FALL [None]
  - ANAEMIA [None]
  - ATRIAL FIBRILLATION [None]
  - HYPERTENSION [None]
  - STAPHYLOCOCCAL INFECTION [None]
  - FEMUR FRACTURE [None]
  - TOOTH EXTRACTION [None]
  - RENAL FAILURE CHRONIC [None]
  - HAEMORRHAGIC ANAEMIA [None]
  - MUSCLE STRAIN [None]
  - HYPOMAGNESAEMIA [None]
  - BODY HEIGHT DECREASED [None]
  - DYSLIPIDAEMIA [None]
  - DYSPNOEA [None]
